FAERS Safety Report 6515944-4 (Version None)
Quarter: 2009Q4

REPORT INFORMATION
  Report Type: 
  Country: None (occurrence: None)
  Receive Date: 20091223
  Receipt Date: 20090325
  Transmission Date: 20100525
  Serious: No
  Sender: FDA-Public Use
  Company Number: US-ABBOTT-09P-163-0565215-00

PATIENT
  Sex: Male
  Weight: 101.24 kg

DRUGS (4)
  1. LUPRON DEPOT [Suspect]
     Indication: PROSTATE CANCER STAGE IV
     Route: 050
     Dates: start: 20080903
  2. CASODEX [Concomitant]
     Indication: ANTIANDROGEN THERAPY
     Route: 048
  3. ZOMETA [Concomitant]
     Indication: METASTASES TO BONE
     Dosage: UNKNOWN
     Route: 042
  4. LEVOXYL [Concomitant]
     Indication: HYPOTHYROIDISM
     Route: 048

REACTIONS (3)
  - BLOOD TESTOSTERONE INCREASED [None]
  - INJECTION SITE MASS [None]
  - PROSTATIC SPECIFIC ANTIGEN INCREASED [None]
